FAERS Safety Report 5914669-3 (Version None)
Quarter: 2008Q4

REPORT INFORMATION
  Report Type: 
  Country: None (occurrence: None)
  Receive Date: 20081008
  Receipt Date: 20080924
  Transmission Date: 20090506
  Serious: Yes (Hospitalization)
  Sender: FDA-Public Use
  Company Number: 2008BI022145

PATIENT
  Age: 47 Year
  Sex: Female

DRUGS (3)
  1. TYSABRI [Suspect]
     Indication: MULTIPLE SCLEROSIS
     Dosage: 300 MG;QM;IV
     Route: 042
     Dates: start: 20070219, end: 20080501
  2. . [Concomitant]
  3. . [Concomitant]

REACTIONS (6)
  - CARDIAC DISORDER [None]
  - DEHYDRATION [None]
  - FURUNCLE [None]
  - GASTROENTERITIS [None]
  - RENAL DISORDER [None]
  - STAPHYLOCOCCAL INFECTION [None]
